FAERS Safety Report 6972655-9 (Version None)
Quarter: 2010Q3

REPORT INFORMATION
  Report Type: 
  Country: None (occurrence: None)
  Receive Date: 20100909
  Receipt Date: 20100831
  Transmission Date: 20110219
  Serious: Yes (Disabling)
  Sender: FDA-Public Use
  Company Number: CH-PFIZER INC-2010109327

PATIENT
  Age: 63 Year
  Sex: Male

DRUGS (3)
  1. SORTIS [Suspect]
     Indication: HYPERLIPIDAEMIA
     Dosage: 40 MG, 1X/DAY
     Route: 048
     Dates: start: 20080315, end: 20080515
  2. SORTIS [Suspect]
     Dosage: 10 MG, UNK
     Route: 048
     Dates: end: 20080314
  3. METOPROLOL SUCCINATE [Concomitant]
     Dosage: UNK
     Dates: start: 20080301

REACTIONS (3)
  - ARTHRALGIA [None]
  - MUSCULOSKELETAL STIFFNESS [None]
  - MYALGIA [None]
